FAERS Safety Report 4931802-0 (Version None)
Quarter: 2006Q1

REPORT INFORMATION
  Report Type: 
  Country: None (occurrence: None)
  Receive Date: 20060303
  Receipt Date: 20060222
  Transmission Date: 20060701
  Serious: Yes (Life-Threatening, Hospitalization)
  Sender: FDA-Public Use
  Company Number: 2006SE01211

PATIENT
  Age: 27021 Day
  Sex: Male
  Weight: 75 kg

DRUGS (8)
  1. CANDESARTAN CILEXETIL [Suspect]
     Indication: CARDIAC FAILURE
     Route: 048
     Dates: start: 20051014, end: 20060221
  2. CANDESARTAN CILEXETIL [Suspect]
     Route: 048
     Dates: start: 20060222
  3. LISINOPRIL [Concomitant]
     Indication: CARDIAC FAILURE
     Route: 048
     Dates: start: 20050824
  4. MOLSIDOMIN [Concomitant]
     Indication: MYOCARDIAL ISCHAEMIA
     Route: 048
     Dates: start: 20050519
  5. BELOC ZOK MITE [Concomitant]
     Indication: CARDIAC FAILURE
     Route: 048
     Dates: start: 20050103
  6. XIPAMIDE [Concomitant]
     Indication: CARDIAC FAILURE
     Route: 048
     Dates: start: 20050519
  7. DIGITOXIN TAB [Concomitant]
     Indication: CARDIAC FAILURE
     Route: 048
     Dates: start: 20030224
  8. PENTAERYTHRITOL TETRANITRATE [Concomitant]
     Indication: MYOCARDIAL ISCHAEMIA
     Route: 048
     Dates: start: 20030304

REACTIONS (1)
  - HYPOTENSION [None]
